FAERS Safety Report 21147795 (Version 1)
Quarter: 2022Q3

REPORT INFORMATION
  Report Type: Spontaneous
  Country: NL (occurrence: NL)
  Receive Date: 20220729
  Receipt Date: 20220729
  Transmission Date: 20221027
  Serious: Yes (Disabling)
  Sender: FDA-Public Use
  Company Number: None

PATIENT
  Sex: Female
  Weight: 59 kg

DRUGS (9)
  1. ATORVASTATIN [Suspect]
     Active Substance: ATORVASTATIN
     Indication: Type IIa hyperlipidaemia
     Dosage: 5 MG, QD (1X PER DAG 5 MG)
     Route: 065
     Dates: start: 2020
  2. ISOSORBIDE MONONITRATE [Suspect]
     Active Substance: ISOSORBIDE MONONITRATE
     Indication: Vasospasm
     Dosage: UNK (1X PER DAG 1 CAPSULE)
     Route: 065
     Dates: start: 202112
  3. IVABRADINE [Suspect]
     Active Substance: IVABRADINE
     Indication: Sinus tachycardia
     Dosage: 5 MG, Q12H (2X PER DAG 1 TABLET)
     Route: 065
     Dates: start: 202109
  4. IVABRADINE [Suspect]
     Active Substance: IVABRADINE
     Dosage: 7.5 MG, Q12H (2X PER DAG 1 TABLET)
     Route: 065
  5. ZINC [Concomitant]
     Active Substance: ZINC
     Indication: Product used for unknown indication
     Dosage: UNK (TABL)
     Route: 065
  6. CHOLECALCIFEROL [Concomitant]
     Active Substance: CHOLECALCIFEROL
     Indication: Product used for unknown indication
     Dosage: 50 UG (50 MCG TABL)
     Route: 065
  7. ASCORBINEZUUR [Concomitant]
     Indication: Product used for unknown indication
     Dosage: 500 MG (500 MG TABL)
     Route: 065
  8. CALCIUM [Concomitant]
     Active Substance: CALCIUM
     Indication: Product used for unknown indication
     Dosage: 1000 MG (1000 MG TABL)
     Route: 065
  9. CYANOCOBALAMIN [Concomitant]
     Active Substance: CYANOCOBALAMIN
     Indication: Product used for unknown indication
     Dosage: 1000 UG (1000MCG TABL)
     Route: 065

REACTIONS (2)
  - Pseudohypoglycaemia [Recovering/Resolving]
  - Weight decreased [Recovering/Resolving]
